FAERS Safety Report 7861425-5 (Version None)
Quarter: 2011Q4

REPORT INFORMATION
  Report Type: 
  Country: None (occurrence: None)
  Receive Date: 20111027
  Receipt Date: 20111025
  Transmission Date: 20120403
  Serious: Yes (Other)
  Sender: FDA-Public Use
  Company Number: FR-PFIZER INC-2011258844

PATIENT
  Sex: Male

DRUGS (2)
  1. LYRICA [Suspect]
     Dosage: 200 MG, UNK
  2. LYRICA [Suspect]
     Dosage: 50 MG, UNK

REACTIONS (4)
  - RASH [None]
  - ERYTHEMA [None]
  - THERMAL BURN [None]
  - SWELLING [None]
